FAERS Safety Report 11109231 (Version 6)
Quarter: 2016Q3

REPORT INFORMATION
  Report Type: Report from Study
  Country: ES (occurrence: ES)
  Receive Date: 20150513
  Receipt Date: 20160715
  Transmission Date: 20161109
  Serious: Yes (Hospitalization)
  Sender: FDA-Public Use
  Company Number: ES-JNJFOC-20150504333

PATIENT
  Sex: Male
  Weight: 86 kg

DRUGS (2)
  1. REMICADE [Suspect]
     Active Substance: INFLIXIMAB
     Indication: COLITIS ULCERATIVE
     Dosage: 0,2,6 WEEKS
     Route: 042
     Dates: start: 20110207, end: 20110321
  2. LOPRAZOLAM [Concomitant]
     Active Substance: LOPRAZOLAM
     Indication: ANXIETY
     Route: 065
     Dates: start: 2010

REACTIONS (4)
  - Ileostomy [Recovered/Resolved]
  - Post procedural complication [Recovered/Resolved]
  - Hemipelvectomy [Recovered/Resolved]
  - Drug ineffective [Unknown]

NARRATIVE: CASE EVENT DATE: 20140404
